FAERS Safety Report 6398676-5 (Version None)
Quarter: 2009Q4

REPORT INFORMATION
  Report Type: 
  Country: None (occurrence: None)
  Receive Date: 20091013
  Receipt Date: 20091007
  Transmission Date: 20100525
  Serious: Yes (Hospitalization)
  Sender: FDA-Public Use
  Company Number: FR-BRISTOL-MYERS SQUIBB COMPANY-14810758

PATIENT
  Age: 73 Year
  Sex: Female

DRUGS (12)
  1. IRBESARTAN AND HYDROCHLOROTHIAZIDE [Suspect]
     Dates: end: 20090813
  2. METFORMINE BIOGARAN [Suspect]
     Dates: end: 20090813
  3. TAHOR [Suspect]
     Dates: end: 20090813
  4. RILMENIDINE BIOGARAN [Suspect]
  5. KARDEGIC [Suspect]
     Dates: end: 20090813
  6. DIAMICRON [Suspect]
     Dates: end: 20090813
  7. KERLONE [Suspect]
     Dates: end: 20090813
  8. BETASERC [Suspect]
     Dates: end: 20090813
  9. LAROXYL [Suspect]
     Dosage: 1 D.F= LAROXYL ROCHE 40 MG/ML 7 DROPS/D
     Dates: end: 20090813
  10. COVERSYL [Suspect]
     Dates: end: 20090813
  11. TAMIFLU [Suspect]
     Indication: INFLUENZA LIKE ILLNESS
     Dates: start: 20090811, end: 20090811
  12. ORACILLINE [Suspect]
     Indication: ERYSIPELAS
     Dates: start: 20090812, end: 20090812

REACTIONS (3)
  - HYPERLACTACIDAEMIA [None]
  - RENAL FAILURE [None]
  - SEPSIS [None]
